FAERS Safety Report 12651083 (Version 1)
Quarter: 2016Q3

REPORT INFORMATION
  Report Type: Spontaneous
  Country: US (occurrence: US)
  Receive Date: 20160815
  Receipt Date: 20160815
  Transmission Date: 20161109
  Serious: No
  Sender: FDA-Public Use
  Company Number: US-JAZZ-2016-US-005372

PATIENT
  Sex: Female

DRUGS (48)
  1. XYREM [Suspect]
     Active Substance: SODIUM OXYBATE
     Indication: NARCOLEPSY
     Dosage: 2.25 G, BID
     Route: 048
     Dates: start: 201003, end: 201004
  2. SENNA-S [Concomitant]
     Active Substance: DOCUSATE SODIUM\SENNOSIDES
  3. PREDNISONE. [Concomitant]
     Active Substance: PREDNISONE
  4. SEROQUEL [Concomitant]
     Active Substance: QUETIAPINE FUMARATE
  5. RITALIN [Concomitant]
     Active Substance: METHYLPHENIDATE HYDROCHLORIDE
  6. HYDROCODONE/ACETAMINOPHEN [Concomitant]
     Active Substance: ACETAMINOPHEN\HYDROCODONE
  7. CIPRO [Concomitant]
     Active Substance: CIPROFLOXACIN HYDROCHLORIDE
  8. DOCUSATE SODIUM. [Concomitant]
     Active Substance: DOCUSATE SODIUM
  9. PANCRELIPASE DR [Concomitant]
  10. CONGESTRIN [Concomitant]
  11. CLONAZEPAM. [Concomitant]
     Active Substance: CLONAZEPAM
  12. FERROUS SULFATE. [Concomitant]
     Active Substance: FERROUS SULFATE
  13. GABAPENTIN. [Concomitant]
     Active Substance: GABAPENTIN
  14. TROSPIUM CHLORIDE ER [Concomitant]
     Active Substance: TROSPIUM CHLORIDE
  15. VITAMIN D [Concomitant]
     Active Substance: CHOLECALCIFEROL
  16. CITALOPRAM [Concomitant]
     Active Substance: CITALOPRAM HYDROBROMIDE
  17. METHYLPHENIDATE. [Concomitant]
     Active Substance: METHYLPHENIDATE
  18. VOLTAREN [Concomitant]
     Active Substance: DICLOFENAC SODIUM
  19. CALCIUM CARBONATE. [Concomitant]
     Active Substance: CALCIUM CARBONATE
  20. COPAXONE [Concomitant]
     Active Substance: GLATIRAMER ACETATE
  21. SUCRALFATE. [Concomitant]
     Active Substance: SUCRALFATE
  22. NAPROXEN. [Concomitant]
     Active Substance: NAPROXEN
  23. SINGULAIR [Concomitant]
     Active Substance: MONTELUKAST SODIUM
  24. NITROSTAT [Concomitant]
     Active Substance: NITROGLYCERIN
  25. ASPIRIN. [Concomitant]
     Active Substance: ASPIRIN
  26. LINZESS [Concomitant]
     Active Substance: LINACLOTIDE
  27. LISINOPRIL. [Concomitant]
     Active Substance: LISINOPRIL
  28. LOVASTATIN. [Concomitant]
     Active Substance: LOVASTATIN
  29. METHYLPHENIDATE ER [Concomitant]
     Active Substance: METHYLPHENIDATE
  30. DILAUDID [Concomitant]
     Active Substance: HYDROMORPHONE HYDROCHLORIDE
  31. METAMUCIL [Concomitant]
     Active Substance: PLANTAGO SEED
  32. MIRALAX [Concomitant]
     Active Substance: POLYETHYLENE GLYCOL 3350
  33. XYREM [Suspect]
     Active Substance: SODIUM OXYBATE
     Dosage: 3 G, BID
     Route: 048
     Dates: start: 201505
  34. PRAZOSIN [Concomitant]
     Active Substance: PRAZOSIN
  35. ZANTAC [Concomitant]
     Active Substance: RANITIDINE HYDROCHLORIDE
  36. ROPINIROLE. [Concomitant]
     Active Substance: ROPINIROLE
  37. LAMOTRIGINE. [Concomitant]
     Active Substance: LAMOTRIGINE
  38. VENTOLIN HFA [Concomitant]
     Active Substance: ALBUTEROL SULFATE
  39. VITAMIN B12 [Concomitant]
     Active Substance: CYANOCOBALAMIN
  40. BACLOFEN. [Concomitant]
     Active Substance: BACLOFEN
  41. XYREM [Suspect]
     Active Substance: SODIUM OXYBATE
     Dosage: DOSE ADJUSTMENTS
     Route: 048
  42. MYRBETRIQ ER [Concomitant]
  43. EFFEXOR XR [Concomitant]
     Active Substance: VENLAFAXINE HYDROCHLORIDE
  44. MIRAPEX [Concomitant]
     Active Substance: PRAMIPEXOLE DIHYDROCHLORIDE
  45. MULTIVITAMIN [Concomitant]
     Active Substance: VITAMINS
  46. OMEPRAZOLE DR [Concomitant]
     Active Substance: OMEPRAZOLE
  47. TRAZODONE [Concomitant]
     Active Substance: TRAZODONE HYDROCHLORIDE
  48. PRAVASTATIN. [Concomitant]
     Active Substance: PRAVASTATIN

REACTIONS (1)
  - Musculoskeletal pain [Unknown]
